FAERS Safety Report 12139806 (Version 1)
Quarter: 2016Q1

REPORT INFORMATION
  Report Type: Spontaneous
  Country: GB (occurrence: GB)
  Receive Date: 20160303
  Receipt Date: 20160303
  Transmission Date: 20160526
  Serious: Yes (Hospitalization)
  Sender: FDA-Public Use
  Company Number: GB-ACCORD-038285

PATIENT
  Age: 36 Year
  Sex: Male
  Weight: 104 kg

DRUGS (3)
  1. GABAPENTIN. [Suspect]
     Active Substance: GABAPENTIN
     Indication: BACK PAIN
     Route: 048
     Dates: start: 20160210, end: 20160212
  2. TRAMADOL/TRAMADOL HYDROCHLORIDE [Suspect]
     Active Substance: TRAMADOL HYDROCHLORIDE
     Indication: BACK PAIN
     Route: 048
     Dates: start: 20160210, end: 20160211
  3. AMITRIPTYLINE [Suspect]
     Active Substance: AMITRIPTYLINE
     Indication: BACK PAIN
     Route: 048
     Dates: start: 20160210, end: 20160212

REACTIONS (3)
  - Opisthotonus [Recovered/Resolved]
  - Serotonin syndrome [Recovering/Resolving]
  - Myoclonus [Recovered/Resolved]

NARRATIVE: CASE EVENT DATE: 20160210
